FAERS Safety Report 9697880 (Version 1)
Quarter: 2013Q4

REPORT INFORMATION
  Report Type: Spontaneous
  Country: FR (occurrence: None)
  Receive Date: 20131118
  Receipt Date: 20131118
  Transmission Date: 20140711
  Serious: Yes (Hospitalization)
  Sender: FDA-Public Use
  Company Number: 1927614

PATIENT
  Age: 78 Year
  Sex: Female

DRUGS (4)
  1. CARBOPLATIN [Suspect]
     Indication: OVARIAN CANCER
     Route: 041
     Dates: start: 20110204, end: 20110204
  2. CARBOPLATIN [Suspect]
     Indication: DISEASE RECURRENCE
     Route: 041
     Dates: start: 20110204, end: 20110204
  3. METHYLPREDNISOLONE MERCK [Concomitant]
  4. ZOPHREN [Concomitant]

REACTIONS (3)
  - Loss of consciousness [None]
  - Feeling hot [None]
  - Hyperhidrosis [None]
